FAERS Safety Report 10188322 (Version 2)
Quarter: 2014Q3

REPORT INFORMATION
  Report Type: Spontaneous
  Country: GB (occurrence: GB)
  Receive Date: 20140522
  Receipt Date: 20140711
  Transmission Date: 20150326
  Serious: Yes (Death, Other)
  Sender: FDA-Public Use
  Company Number: GB-TEVA-481372ISR

PATIENT
  Age: 68 Year
  Sex: Male

DRUGS (8)
  1. CLOZARIL [Suspect]
     Active Substance: CLOZAPINE
     Indication: SCHIZOPHRENIA, PARANOID TYPE
     Dosage: 400 MILLIGRAM DAILY; 400 MG, (100 MG MANE AND 300 MG NOCTE), DAILY
     Route: 048
     Dates: start: 20010701
  2. FLUOXETINE [Suspect]
     Active Substance: FLUOXETINE\FLUOXETINE HYDROCHLORIDE
     Indication: SCHIZOPHRENIA, PARANOID TYPE
     Dosage: 40 MILLIGRAM DAILY;
     Route: 048
  3. FYBOGEL [Concomitant]
     Active Substance: PLANTAGO OVATA SEED
     Dosage: 1 GRAM DAILY;
     Route: 048
  4. METFORMIN [Suspect]
     Active Substance: METFORMIN HYDROCHLORIDE
     Dosage: 2 GRAM DAILY; 1 G, BID
     Route: 048
  5. ASPIRIN. [Suspect]
     Active Substance: ASPIRIN
     Dosage: 75 MILLIGRAM DAILY;
     Route: 048
  6. ARIPIPRAZOLE [Suspect]
     Active Substance: ARIPIPRAZOLE
     Indication: SCHIZOPHRENIA, PARANOID TYPE
     Dosage: 5 MILLIGRAM DAILY;
     Route: 048
  7. LACTULOSE. [Concomitant]
     Active Substance: LACTULOSE
     Dosage: 15 ML DAILY;
     Route: 048
  8. SIMVASTATIN. [Concomitant]
     Active Substance: SIMVASTATIN
     Dosage: 40 MILLIGRAM DAILY;
     Route: 048

REACTIONS (6)
  - Death [Fatal]
  - Myocardial infarction [Fatal]
  - Blood cholesterol increased [Unknown]
  - Arteriosclerosis coronary artery [Fatal]
  - Type 2 diabetes mellitus [Fatal]
  - Myocardial ischaemia [Fatal]
